FAERS Safety Report 12736433 (Version 1)
Quarter: 2016Q3

REPORT INFORMATION
  Report Type: Other
  Country: BE (occurrence: BE)
  Receive Date: 20160913
  Receipt Date: 20160913
  Transmission Date: 20161109
  Serious: Yes (Other)
  Sender: FDA-Public Use
  Company Number: BE-APOTEX-2016AP011436

PATIENT
  Age: 36 Year
  Sex: Male

DRUGS (5)
  1. SIMVASTATINE APOTEX, FILMOMHULDE TABLETTEN [Suspect]
     Active Substance: SIMVASTATIN
     Indication: DYSLIPIDAEMIA
     Route: 048
  2. PAXIL [Suspect]
     Active Substance: PAROXETINE HYDROCHLORIDE
     Indication: DEPRESSION
     Dosage: 20 MG, QD
     Route: 048
  3. PANTOMED                           /01263204/ [Suspect]
     Active Substance: PANTOPRAZOLE SODIUM
     Indication: OESOPHAGITIS
     Dosage: 40 MG, QD
     Route: 048
  4. ABILIFY [Suspect]
     Active Substance: ARIPIPRAZOLE
     Indication: PRODUCT USED FOR UNKNOWN INDICATION
     Route: 048
  5. ENGERIX-B [Suspect]
     Active Substance: HEPATITIS B VIRUS SUBTYPE ADW2 HBSAG SURFACE PROTEIN ANTIGEN
     Indication: PROPHYLAXIS
     Dosage: 20 MCG
     Route: 058
     Dates: start: 20160726, end: 20160726

REACTIONS (10)
  - Loss of consciousness [Recovered/Resolved]
  - Incorrect route of drug administration [Unknown]
  - Hyperhidrosis [Recovered/Resolved]
  - Migraine [Recovered/Resolved]
  - Pallor [Recovered/Resolved]
  - Dizziness [Recovered/Resolved]
  - Tonic clonic movements [Recovered/Resolved]
  - Fatigue [Recovered/Resolved]
  - Malaise [Recovered/Resolved]
  - Blood pressure decreased [Recovered/Resolved]

NARRATIVE: CASE EVENT DATE: 20160726
